FAERS Safety Report 8238964-0 (Version None)
Quarter: 2012Q1

REPORT INFORMATION
  Report Type: 
  Country: None (occurrence: None)
  Receive Date: 20120327
  Receipt Date: 20120319
  Transmission Date: 20120608
  Serious: Yes (Hospitalization)
  Sender: FDA-Public Use
  Company Number: CN-GILEAD-2012-0052688

PATIENT
  Age: 22 Year
  Sex: Male

DRUGS (1)
  1. ADEFOVIR DIPIVOXIL [Suspect]
     Indication: HEPATITIS B
     Dosage: 10 MG, QD
     Route: 048
     Dates: start: 20070101, end: 20111001

REACTIONS (6)
  - MUSCULAR WEAKNESS [None]
  - FANCONI SYNDROME ACQUIRED [None]
  - RENAL TUBULAR DISORDER [None]
  - HYPOPHOSPHATAEMIA [None]
  - OSTEOMALACIA [None]
  - METABOLIC ACIDOSIS [None]
